FAERS Safety Report 8942806 (Version 1)
Quarter: 2012Q4

REPORT INFORMATION
  Report Type: 
  Country: FI (occurrence: FI)
  Receive Date: 20121204
  Receipt Date: 20121204
  Transmission Date: 20130627
  Serious: Yes (Hospitalization)
  Sender: FDA-Public Use
  Company Number: FI-ELI_LILLY_AND_COMPANY-FI201211007605

PATIENT
  Sex: Female

DRUGS (6)
  1. FORSTEO [Suspect]
     Indication: OSTEOPOROSIS
     Dosage: 20 ug, qd
     Route: 058
     Dates: start: 20110725
  2. PREDNISONE [Concomitant]
     Indication: RHEUMATIC DISORDER
     Dosage: 5 mg, qd
     Route: 065
  3. IMUREL [Concomitant]
     Indication: RHEUMATIC DISORDER
     Dosage: UNK, unknown
     Route: 065
  4. NEXIUM [Concomitant]
     Indication: HYPERCHLORHYDRIA
     Dosage: 40 mg, unknown
     Route: 065
  5. PANADOL [Concomitant]
     Indication: PAIN
     Dosage: 1 g, qd
     Route: 065
  6. CALCIUM W/VITAMIN D NOS [Concomitant]
     Indication: MEDICAL DIET
     Dosage: UNK, unknown
     Route: 065

REACTIONS (2)
  - Road traffic accident [Not Recovered/Not Resolved]
  - Lower limb fracture [Not Recovered/Not Resolved]
